FAERS Safety Report 5345015-4 (Version None)
Quarter: 2007Q2

REPORT INFORMATION
  Report Type: 
  Country: None (occurrence: None)
  Receive Date: 20070416
  Receipt Date: 20061229
  Transmission Date: 20071010
  Serious: No
  Sender: FDA-Public Use
  Company Number: 2006SP004502

PATIENT
  Sex: Female

DRUGS (1)
  1. LUNESTA [Suspect]
     Dosage: 6 MG;UNK;ORAL
     Route: 048
     Dates: start: 20061228

REACTIONS (1)
  - DYSGEUSIA [None]
